FAERS Safety Report 4974801-5 (Version None)
Quarter: 2006Q2

REPORT INFORMATION
  Report Type: 
  Country: None (occurrence: None)
  Receive Date: 20060417
  Receipt Date: 20060216
  Transmission Date: 20061013
  Serious: Yes (Hospitalization)
  Sender: FDA-Public Use
  Company Number: US-MERCK-0602USA04635

PATIENT
  Sex: Female

DRUGS (5)
  1. VIOXX [Suspect]
     Indication: ARTHRITIS
     Route: 048
     Dates: start: 20000101, end: 20000821
  2. VIOXX [Suspect]
     Route: 048
     Dates: start: 20000822
  3. VIOXX [Suspect]
     Route: 048
     Dates: start: 20010301
  4. VIOXX [Suspect]
     Route: 048
     Dates: start: 20021217
  5. VIOXX [Suspect]
     Route: 048
     Dates: start: 20030604, end: 20040901

REACTIONS (15)
  - BRONCHITIS [None]
  - CARDIAC STRESS TEST ABNORMAL [None]
  - CHRONIC SINUSITIS [None]
  - CORONARY ARTERY DISEASE [None]
  - DIZZINESS [None]
  - HYPERTRIGLYCERIDAEMIA [None]
  - INSOMNIA [None]
  - MIGRAINE [None]
  - NAUSEA [None]
  - PAIN [None]
  - PARONYCHIA [None]
  - PERIARTHRITIS [None]
  - PRODUCTIVE COUGH [None]
  - ROTATOR CUFF SYNDROME [None]
  - TENSION HEADACHE [None]
